FAERS Safety Report 5933564-7 (Version None)
Quarter: 2008Q4

REPORT INFORMATION
  Report Type: 
  Country: None (occurrence: None)
  Receive Date: 20081024
  Receipt Date: 20081008
  Transmission Date: 20090506
  Serious: Yes (Death, Hospitalization)
  Sender: FDA-Public Use
  Company Number: DSM-2008-00908

PATIENT
  Age: 71 Year
  Sex: Male

DRUGS (6)
  1. OPENVAS (OLMESARTAN MEDOXOMIL) (10 MILLIGRAM) (OLMESARTAN MEDOXOMIL) [Suspect]
     Indication: HYPERTENSION
     Dosage: 10 MG (10 MG, 1 IN 1D)
  2. ACABEL (BEVONIUM METILSULFATE)(4 MILLIGRAM)(BEVONIUM METILSULFATE) [Suspect]
     Indication: BACK PAIN
     Dosage: (1 IN 1 D), ORAL
     Route: 048
     Dates: start: 20080422, end: 20080428
  3. AIRTAL (ACECLOFENAC) (CREAM) (ACECLOFENAC) [Suspect]
     Dosage: 50/2 MG, TOPICAL
     Route: 061
  4. ENANTYUM (DEXKETOPROFEN TROMETAMOL)(DEXKETOPROFEN TROMETAMOL) [Suspect]
     Indication: PAIN
     Dosage: INTRAMUSCULAR
     Route: 030
     Dates: start: 20080422, end: 20080422
  5. MYOLASTAN (TETRAZEPAM) (50  MILLIGRAM)(TETRAZEPAM) [Concomitant]
  6. ALLOPURINOL [Concomitant]

REACTIONS (5)
  - BLOOD SODIUM DECREASED [None]
  - CARDIO-RESPIRATORY ARREST [None]
  - DRUG INTERACTION [None]
  - HYPERHIDROSIS [None]
  - RENAL FAILURE ACUTE [None]
